FAERS Safety Report 20595618 (Version 2)
Quarter: 2022Q2

REPORT INFORMATION
  Report Type: Spontaneous
  Country: AT (occurrence: AT)
  Receive Date: 20220315
  Receipt Date: 20220628
  Transmission Date: 20220720
  Serious: Yes (Other)
  Sender: FDA-Public Use
  Company Number: AT-GSKCCFEMEA-Case-01443650_AE-55849

PATIENT

DRUGS (1)
  1. WELLBUTRIN XL [Suspect]
     Active Substance: BUPROPION HYDROCHLORIDE
     Indication: Product used for unknown indication
     Dosage: 150 MG
     Dates: end: 202202

REACTIONS (5)
  - Dysentery [Unknown]
  - Diarrhoea [Unknown]
  - Hyperhidrosis [Unknown]
  - Sleep disorder [Unknown]
  - Insomnia [Unknown]
